FAERS Safety Report 18601525 (Version 7)
Quarter: 2021Q2

REPORT INFORMATION
  Report Type: Spontaneous
  Country: US (occurrence: US)
  Receive Date: 20201210
  Receipt Date: 20210430
  Transmission Date: 20210717
  Serious: No
  Sender: FDA-Public Use
  Company Number: US-PFIZER INC-2020486877

PATIENT
  Age: 54 Year
  Sex: Female

DRUGS (2)
  1. IBRANCE [Suspect]
     Active Substance: PALBOCICLIB
     Dosage: 100 MG
  2. IBRANCE [Suspect]
     Active Substance: PALBOCICLIB
     Dosage: 125 MG
     Dates: start: 20201201

REACTIONS (7)
  - Asthenia [Unknown]
  - Neoplasm progression [Not Recovered/Not Resolved]
  - Nausea [Recovered/Resolved]
  - White blood cell count decreased [Unknown]
  - Back pain [Not Recovered/Not Resolved]
  - Neutrophil count decreased [Unknown]
  - Flatulence [Recovered/Resolved]

NARRATIVE: CASE EVENT DATE: 2020
